FAERS Safety Report 8509592-4 (Version None)
Quarter: 2012Q3

REPORT INFORMATION
  Report Type: 
  Country: None (occurrence: None)
  Receive Date: 20120703
  Receipt Date: 20120618
  Transmission Date: 20120928
  Serious: Yes (Other)
  Sender: FDA-Public Use
  Company Number: 20120397

PATIENT
  Age: 30 Year
  Sex: Male

DRUGS (6)
  1. SEVOFLURANE [Suspect]
     Indication: ANAESTHESIA
     Dosage: DOSE AND FREQUENCY
  2. MIDAZOLAM [Suspect]
     Indication: ANAESTHESIA
     Dosage: 2 MG
  3. LIDOCAINE 1% INJ [Suspect]
     Indication: ANAESTHESIA
     Dosage: 100 MG
  4. FENTANYL [Suspect]
     Indication: ANAESTHESIA
     Dosage: 50 UG
  5. PROPOFOL [Suspect]
     Indication: ANAESTHESIA
     Dosage: 150 MG
  6. SUXAMETHONIUM CHLORIDE [Suspect]
     Indication: ANAESTHESIA
     Dosage: 100 MG

REACTIONS (9)
  - STRESS CARDIOMYOPATHY [None]
  - VENTRICULAR TACHYCARDIA [None]
  - CYANOSIS [None]
  - CARDIAC FAILURE [None]
  - VENTRICULAR FIBRILLATION [None]
  - SINUS TACHYCARDIA [None]
  - VENTRICULAR EXTRASYSTOLES [None]
  - EXTRASYSTOLES [None]
  - MITRAL VALVE INCOMPETENCE [None]
